FAERS Safety Report 19100027 (Version 2)
Quarter: 2021Q4

REPORT INFORMATION
  Report Type: Spontaneous
  Country: GB (occurrence: GB)
  Receive Date: 20210407
  Receipt Date: 20211116
  Transmission Date: 20220303
  Serious: Yes (Disabling)
  Sender: FDA-Public Use
  Company Number: GB-MHRA-TPP28443027C7177533YC1616767065192

PATIENT
  Age: 31 Year
  Sex: Female
  Weight: 89 kg

DRUGS (7)
  1. TRAMADOL [Suspect]
     Active Substance: TRAMADOL
     Indication: Ill-defined disorder
     Dosage: UNK
     Route: 065
     Dates: start: 20210326
  2. VARENICLINE TARTRATE [Concomitant]
     Active Substance: VARENICLINE TARTRATE
     Indication: Ill-defined disorder
     Dosage: USE AS DIRECTED BY SMOKING CESSATION CLINIC
     Route: 065
     Dates: start: 20210122, end: 20210123
  3. CITALOPRAM [Concomitant]
     Active Substance: CITALOPRAM HYDROBROMIDE
     Indication: Ill-defined disorder
     Dosage: TAKE ONE DAILY
     Route: 065
     Dates: start: 20200330
  4. LEVOTHYROXINE [Concomitant]
     Active Substance: LEVOTHYROXINE
     Indication: Ill-defined disorder
     Dosage: TAKE ONE DAILY
     Route: 065
     Dates: start: 20210109
  5. TRAMADOL [Concomitant]
     Active Substance: TRAMADOL
     Indication: Ill-defined disorder
     Dosage: TAKE ONE OR TWO CAPSULES UP TO FOUR TIMES A DAY...
     Route: 065
     Dates: start: 20210222, end: 20210301
  6. TRANEXAMIC ACID [Concomitant]
     Active Substance: TRANEXAMIC ACID
     Indication: Ill-defined disorder
     Dosage: 2 TABLETS THREE TIMES A DAY, NORMALLY TAKEN FOR UP TO 4 DAYS IN A ROW TO EASE...
     Route: 065
     Dates: start: 20210222, end: 20210223
  7. VARENICLINE [Concomitant]
     Active Substance: VARENICLINE
     Indication: Ill-defined disorder
     Dosage: TAKE ONE TWICE DAILY
     Route: 065
     Dates: start: 20210216, end: 20210316

REACTIONS (2)
  - Vomiting [Recovered/Resolved]
  - Tremor [Recovered/Resolved]

NARRATIVE: CASE EVENT DATE: 20210326
